FAERS Safety Report 5103248-6 (Version None)
Quarter: 2006Q3

REPORT INFORMATION
  Report Type: 
  Country: None (occurrence: None)
  Receive Date: 20060908
  Receipt Date: 20060828
  Transmission Date: 20061208
  Serious: Yes (Life-Threatening, Hospitalization)
  Sender: FDA-Public Use
  Company Number: HQWYE152530AUG06

PATIENT
  Age: 66 Year
  Sex: Female

DRUGS (10)
  1. MYLOTARG [Suspect]
     Indication: ACUTE MYELOID LEUKAEMIA
     Dosage: SEE IMAGE
     Route: 041
     Dates: start: 20060512, end: 20060512
  2. MYLOTARG [Suspect]
     Indication: ACUTE MYELOID LEUKAEMIA
     Dosage: SEE IMAGE
     Route: 041
     Dates: start: 20060526, end: 20060526
  3. FAMOTIDINE [Concomitant]
  4. SULFAMETHOXAZOLE + TRIMETHOPRIM [Concomitant]
  5. VFEND [Concomitant]
  6. MEROPEN (MEROPENEM) [Concomitant]
  7. MEROPEN (MEROPENEM) [Concomitant]
  8. ISEPACIN (ISEPAMICIN SULFATE) [Concomitant]
  9. CLINDAMYCIN PHOSPHATE [Concomitant]
  10. NEUPOGEN [Concomitant]

REACTIONS (13)
  - ANOREXIA [None]
  - ASPARTATE AMINOTRANSFERASE INCREASED [None]
  - BLOOD ALKALINE PHOSPHATASE INCREASED [None]
  - BLOOD LACTATE DEHYDROGENASE INCREASED [None]
  - DISSEMINATED INTRAVASCULAR COAGULATION [None]
  - DYSGEUSIA [None]
  - FATIGUE [None]
  - GAMMA-GLUTAMYLTRANSFERASE INCREASED [None]
  - HERPES SIMPLEX [None]
  - HYPOGAMMAGLOBULINAEMIA [None]
  - TUMOUR LYSIS SYNDROME [None]
  - WEIGHT INCREASED [None]
  - WHITE BLOOD CELL COUNT DECREASED [None]
